FAERS Safety Report 23228555 (Version 1)
Quarter: 2023Q4

REPORT INFORMATION
  Report Type: Report from Study
  Country: NL (occurrence: NL)
  Receive Date: 20231125
  Receipt Date: 20231125
  Transmission Date: 20240109
  Serious: Yes (Other)
  Sender: FDA-Public Use
  Company Number: NL-002147023-NVSC2023NL249503

PATIENT
  Age: 38 Year
  Sex: Female

DRUGS (2)
  1. LEQVIO [Suspect]
     Active Substance: INCLISIRAN SODIUM
     Indication: Type IIa hyperlipidaemia
     Dosage: 1 DOSAGE FORM EVERY 6 MONTHS (284MG/1,5ML  (189MG/ML) )
     Route: 058
  2. EZETIMIBE [Concomitant]
     Active Substance: EZETIMIBE
     Indication: Product used for unknown indication
     Dosage: 10 MG, QD (30 PIECES)
     Route: 048

REACTIONS (1)
  - Lymphatic system neoplasm [Not Recovered/Not Resolved]

NARRATIVE: CASE EVENT DATE: 20231107
